FAERS Safety Report 14671850 (Version 1)
Quarter: 2018Q1

REPORT INFORMATION
  Report Type: Spontaneous
  Country: CL (occurrence: CL)
  Receive Date: 20180323
  Receipt Date: 20180323
  Transmission Date: 20180509
  Serious: Yes (Other)
  Sender: FDA-Public Use
  Company Number: CL-MERCK KGAA-2044362

PATIENT
  Sex: Female

DRUGS (1)
  1. NOVOTHYROX [Suspect]
     Active Substance: LEVOTHYROXINE SODIUM
     Indication: THYROIDECTOMY

REACTIONS (7)
  - Anxiety [Recovered/Resolved]
  - Bone pain [None]
  - Hyperhidrosis [None]
  - Benign neoplasm of thyroid gland [None]
  - Insomnia [Recovered/Resolved]
  - Tachycardia [None]
  - Feeling hot [None]
